FAERS Safety Report 7915927-3 (Version None)
Quarter: 2011Q4

REPORT INFORMATION
  Report Type: 
  Country: None (occurrence: None)
  Receive Date: 20111115
  Receipt Date: 20111103
  Transmission Date: 20120403
  Serious: Yes (Life-Threatening, Hospitalization, Other)
  Sender: FDA-Public Use
  Company Number: US-ELI_LILLY_AND_COMPANY-US201108004916

PATIENT
  Sex: Female
  Weight: 92.517 kg

DRUGS (1)
  1. FORTEO [Suspect]
     Indication: OSTEOPOROSIS
     Dosage: 20 UG, QD
     Dates: start: 20100301

REACTIONS (5)
  - INFECTION [None]
  - BODY TEMPERATURE INCREASED [None]
  - ACUTE PULMONARY OEDEMA [None]
  - OSTEOPENIA [None]
  - MECHANICAL VENTILATION [None]
